FAERS Safety Report 16227537 (Version 1)
Quarter: 2019Q2

REPORT INFORMATION
  Report Type: Spontaneous
  Country: HR (occurrence: HR)
  Receive Date: 20190423
  Receipt Date: 20190423
  Transmission Date: 20190711
  Serious: Yes (Other)
  Sender: FDA-Public Use
  Company Number: HR-BAYER-2019-076176

PATIENT
  Age: 50 Year
  Sex: Male

DRUGS (6)
  1. ROSUVASTATIN. [Concomitant]
     Active Substance: ROSUVASTATIN
     Indication: NASAL CONGESTION
  2. EPHEDRINE. [Interacting]
     Active Substance: EPHEDRINE
     Dosage: 4-5 TIMES DAILY.
     Route: 045
  3. AMOXICILLIN. [Concomitant]
     Active Substance: AMOXICILLIN
  4. LORATADINE + PSEUDOEPHEDRINE SULFATE [Suspect]
     Active Substance: LORATADINE\PSEUDOEPHEDRINE SULFATE
     Indication: ACUTE SINUSITIS
     Dosage: 5/120 MG
     Route: 048
  5. LORATADINE + PSEUDOEPHEDRINE SULFATE [Interacting]
     Active Substance: LORATADINE\PSEUDOEPHEDRINE SULFATE
     Indication: NASAL CONGESTION
  6. ROSUVASTATIN. [Concomitant]
     Active Substance: ROSUVASTATIN
     Indication: ACUTE SINUSITIS
     Dosage: 10 MG

REACTIONS (3)
  - Tinnitus [None]
  - Headache [None]
  - Hypertension [None]
